FAERS Safety Report 19306485 (Version 1)
Quarter: 2021Q2

REPORT INFORMATION
  Report Type: Spontaneous
  Country: NL (occurrence: NL)
  Receive Date: 20210526
  Receipt Date: 20210526
  Transmission Date: 20210717
  Serious: Yes (Other)
  Sender: FDA-Public Use
  Company Number: NL-ACCORD-225911

PATIENT
  Sex: Male
  Weight: 78 kg

DRUGS (1)
  1. SPIRONOLACTONE. [Suspect]
     Active Substance: SPIRONOLACTONE
     Indication: HYPERTENSION
     Dosage: 1 X PER DAY 1 PIECE
     Dates: start: 20210101

REACTIONS (1)
  - Erectile dysfunction [Not Recovered/Not Resolved]
